FAERS Safety Report 4980369-X (Version None)
Quarter: 2006Q2

REPORT INFORMATION
  Report Type: 
  Country: None (occurrence: None)
  Receive Date: 20060424
  Receipt Date: 20060412
  Transmission Date: 20061013
  Serious: Yes (Other)
  Sender: FDA-Public Use
  Company Number: US-AVENTIS-200613555US

PATIENT
  Sex: Female

DRUGS (11)
  1. KETEK [Suspect]
     Dosage: DOSE: UNKNOWN
  2. CARDIZEM [Suspect]
     Dosage: DOSE: UNK
  3. ASPIRIN [Concomitant]
     Dosage: DOSE: UNKNOWN
  4. LEVOXYL [Concomitant]
     Dosage: DOSE: UNKNOWN
  5. THYROID TAB [Concomitant]
     Dosage: DOSE: UNKNOWN
  6. AMINOPHYLLINE [Concomitant]
     Dosage: DOSE: UNKNOWN
  7. BENADRYL [Concomitant]
     Dosage: DOSE: UNKNOWN
  8. FOSAMAX [Concomitant]
     Dosage: DOSE: UNKNOWN
  9. KENALOG [Concomitant]
     Dosage: DOSE: UNKNOWN
  10. FIORINAL [Concomitant]
     Indication: MIGRAINE
     Dosage: DOSE: UNKNOWN
  11. DEMADEX [Concomitant]
     Dosage: DOSE: UNKNOWN

REACTIONS (4)
  - ATRIAL FIBRILLATION [None]
  - DIZZINESS [None]
  - DRUG INTERACTION [None]
  - VISUAL DISTURBANCE [None]
